FAERS Safety Report 10239504 (Version 2)
Quarter: 2014Q2

REPORT INFORMATION
  Report Type: Spontaneous
  Country: CA (occurrence: CA)
  Receive Date: 20140616
  Receipt Date: 20140624
  Transmission Date: 20141212
  Serious: Yes (Hospitalization)
  Sender: FDA-Public Use
  Company Number: CA-GE HEALTHCARE MEDICAL DIAGNOSTICS-VISP-PR-1406S-0264

PATIENT
  Age: 53 Year
  Sex: Female

DRUGS (15)
  1. VISIPAQUE [Suspect]
     Indication: MASS
     Route: 042
     Dates: start: 20140603, end: 20140603
  2. VISIPAQUE [Suspect]
     Indication: RENAL MASS
  3. VISIPAQUE [Suspect]
     Indication: LYMPHADENOPATHY
  4. VISIPAQUE [Suspect]
     Indication: MASS
  5. VISIPAQUE [Suspect]
     Indication: DIAGNOSTIC PROCEDURE
  6. LEVOTHYROXINE [Concomitant]
  7. CITALOPRAM [Concomitant]
  8. LOSEC [Concomitant]
  9. ASA [Concomitant]
  10. LIPITOR [Concomitant]
  11. ZOPICLONE [Concomitant]
  12. QUETIAPINE [Concomitant]
  13. CLONAZEPAM [Concomitant]
  14. HYDROCHLOROTHIAZIDE [Concomitant]
  15. RAMIPRIL [Concomitant]

REACTIONS (4)
  - Throat tightness [Unknown]
  - Blister [Unknown]
  - Flushing [Unknown]
  - Dyspnoea [Unknown]
